FAERS Safety Report 10720721 (Version 1)
Quarter: 2015Q1

REPORT INFORMATION
  Report Type: Spontaneous
  Country: US (occurrence: US)
  Receive Date: 20150119
  Receipt Date: 20150119
  Transmission Date: 20150721
  Serious: No
  Sender: FDA-Public Use
  Company Number: US-BRACCO-008304

PATIENT
  Age: 34 Year
  Sex: Female

DRUGS (2)
  1. SINOGRAFIN [Suspect]
     Active Substance: DIATRIZOATE MEGLUMINE\IODIPAMIDE MEGLUMINE
     Indication: HYSTEROSALPINGOGRAM
     Dates: start: 20120705, end: 20120705
  2. SINOGRAFIN [Suspect]
     Active Substance: DIATRIZOATE MEGLUMINE\IODIPAMIDE MEGLUMINE
     Indication: INFERTILITY
     Dates: start: 20120705, end: 20120705

REACTIONS (3)
  - Chest discomfort [Not Recovered/Not Resolved]
  - Dysgeusia [Not Recovered/Not Resolved]
  - Abdominal discomfort [Not Recovered/Not Resolved]

NARRATIVE: CASE EVENT DATE: 20120705
